FAERS Safety Report 15343844 (Version 1)
Quarter: 2018Q3

REPORT INFORMATION
  Report Type: Spontaneous
  Country: CA (occurrence: CA)
  Receive Date: 20180903
  Receipt Date: 20180903
  Transmission Date: 20181010
  Serious: Yes (Hospitalization)
  Sender: FDA-Public Use
  Company Number: CA-GLAXOSMITHKLINE-CA2018GSK124628

PATIENT
  Sex: Female

DRUGS (1)
  1. TRELEGY ELLIPTA [Suspect]
     Active Substance: FLUTICASONE FUROATE\UMECLIDINIUM BROMIDE\VILANTEROL TRIFENATATE
     Indication: CHRONIC OBSTRUCTIVE PULMONARY DISEASE
     Dosage: UNK
     Dates: start: 20180703

REACTIONS (7)
  - Dyspnoea [Unknown]
  - Eructation [Unknown]
  - Chronic obstructive pulmonary disease [Recovering/Resolving]
  - Vision blurred [Unknown]
  - Coating in mouth [Unknown]
  - Nervousness [Unknown]
  - Drug ineffective [Unknown]
